FAERS Safety Report 8351351-X (Version None)
Quarter: 2012Q2

REPORT INFORMATION
  Report Type: 
  Country: None (occurrence: None)
  Receive Date: 20120510
  Receipt Date: 20120502
  Transmission Date: 20120825
  Serious: Yes (Other)
  Sender: FDA-Public Use
  Company Number: US-ABBOTT-12P-163-0931646-00

PATIENT
  Sex: Female
  Weight: 89.892 kg

DRUGS (3)
  1. HUMIRA [Suspect]
     Indication: PSORIASIS
  2. UNNAMED MEDICATION [Concomitant]
     Indication: HYPERTENSION
  3. HUMIRA [Suspect]
     Indication: PSORIATIC ARTHROPATHY

REACTIONS (2)
  - TOOTH EROSION [None]
  - TOOTH FRACTURE [None]
